FAERS Safety Report 11120665 (Version 1)
Quarter: 2015Q2

REPORT INFORMATION
  Report Type: Spontaneous
  Country: TR (occurrence: TR)
  Receive Date: 20150519
  Receipt Date: 20150519
  Transmission Date: 20150821
  Serious: Yes (Hospitalization)
  Sender: FDA-Public Use
  Company Number: TR-BAYER-2015-203293

PATIENT
  Age: 50 Year
  Sex: Female
  Weight: 95 kg

DRUGS (1)
  1. MIRENA [Suspect]
     Active Substance: LEVONORGESTREL
     Indication: MENORRHAGIA
     Dosage: 20 MCG/24HR, CONT
     Route: 015
     Dates: start: 20150305, end: 20150313

REACTIONS (5)
  - Palpitations [Recovered/Resolved]
  - Emotional distress [Recovered/Resolved]
  - Blood pressure increased [Recovered/Resolved]
  - Menopausal symptoms [Recovered/Resolved]
  - Swelling face [Recovered/Resolved]

NARRATIVE: CASE EVENT DATE: 20150305
